FAERS Safety Report 4690308-7 (Version None)
Quarter: 2005Q2

REPORT INFORMATION
  Report Type: 
  Country: None (occurrence: None)
  Receive Date: 20050615
  Receipt Date: 20050606
  Transmission Date: 20051028
  Serious: Yes (Other)
  Sender: FDA-Public Use
  Company Number: AT-GLAXOSMITHKLINE-B0384210A

PATIENT
  Age: 22 Year
  Sex: Male

DRUGS (3)
  1. LAMICTAL [Suspect]
     Indication: DRUG USE FOR UNKNOWN INDICATION
     Dosage: 50MG PER DAY
     Route: 048
  2. AMISULPRIDE [Concomitant]
     Route: 048
  3. ARIPIPRAZOLE [Concomitant]
     Dosage: 15MG PER DAY
     Route: 048
     Dates: start: 20050120, end: 20050127

REACTIONS (6)
  - IMPATIENCE [None]
  - LOGORRHOEA [None]
  - MANIA [None]
  - MENTAL STATUS CHANGES [None]
  - SLEEP DISORDER [None]
  - THINKING ABNORMAL [None]
